FAERS Safety Report 19724333 (Version 1)
Quarter: 2021Q3

REPORT INFORMATION
  Report Type: Spontaneous
  Country: FR (occurrence: FR)
  Receive Date: 20210819
  Receipt Date: 20210819
  Transmission Date: 20211014
  Serious: Yes (Hospitalization, Other)
  Sender: FDA-Public Use
  Company Number: FR-AMGEN-FRASP2021124448

PATIENT
  Age: 8 Year
  Sex: Male

DRUGS (4)
  1. XGEVA [Suspect]
     Active Substance: DENOSUMAB
     Indication: OFF LABEL USE
     Dosage: UNK UNK, QMO
     Route: 058
  2. XGEVA [Suspect]
     Active Substance: DENOSUMAB
     Dosage: UNK, Q3MO
     Route: 058
  3. XGEVA [Suspect]
     Active Substance: DENOSUMAB
     Indication: ANEURYSMAL BONE CYST
     Dosage: 70 MILLIGRAM/SQ. METER, QWK
     Route: 058
  4. XGEVA [Suspect]
     Active Substance: DENOSUMAB
     Dosage: UNK, Q2MO
     Route: 058

REACTIONS (10)
  - Off label use [Unknown]
  - Knee deformity [Unknown]
  - Hypertensive crisis [Unknown]
  - Rebound effect [Unknown]
  - Hypercalcaemia [Unknown]
  - Growth disorder [Unknown]
  - Osteosclerosis [Unknown]
  - Dehydration [Unknown]
  - Acute kidney injury [Unknown]
  - Neoplasm progression [Unknown]
